FAERS Safety Report 7509565-4 (Version None)
Quarter: 2011Q2

REPORT INFORMATION
  Report Type: 
  Country: None (occurrence: None)
  Receive Date: 20110527
  Receipt Date: 20110518
  Transmission Date: 20111010
  Serious: Yes (Death)
  Sender: FDA-Public Use
  Company Number: US-BAYER-200917730NA

PATIENT
  Age: 67 Year
  Sex: Male
  Weight: 110.66 kg

DRUGS (18)
  1. AVELOX [Concomitant]
     Dosage: 400 MG, UNK
  2. NORVASC [Concomitant]
     Dosage: 10 MG, QD
  3. GLUCOPHAGE [Concomitant]
     Dosage: 1000 MG, BID
  4. LASIX [Concomitant]
     Dosage: 40 MG, UNK
  5. TOPROL-XL [Concomitant]
     Dosage: 50 MG, UNK
  6. HYDROCHLOROTHIAZIDE [Concomitant]
     Dosage: 10/12.5MG/TWICE A DAY
  7. MANNITOL [Concomitant]
     Dosage: 25%/ 12.5 GRAM
     Dates: start: 20070709
  8. TRASYLOL [Suspect]
     Indication: CORONARY ARTERY BYPASS
     Dosage: 200 ML, FOLLOWED BY 50CC/HR
     Route: 042
     Dates: start: 20070709, end: 20070709
  9. TRASYLOL [Suspect]
     Dosage: 200 ML PUMP PRIME
     Route: 042
     Dates: start: 20070709, end: 20070709
  10. INSULIN [INSULIN HUMAN] [Concomitant]
     Dosage: DAILY
  11. CRESTOR [Concomitant]
     Dosage: 10 MG, QD
  12. PROCRIT [Concomitant]
  13. ZINACEF [Concomitant]
     Dosage: 1.5 G, UNK
     Dates: start: 20070709
  14. TRASYLOL [Suspect]
     Dosage: 10,000
     Route: 042
     Dates: start: 20070709
  15. ZINACEF [Concomitant]
     Dosage: 750 G, UNK
     Dates: start: 20070709
  16. ALBUTEROL SULFATE AUTOHALER [Concomitant]
     Dosage: 90 MCG/24HR, UNK
  17. HEPARIN [Concomitant]
     Dosage: UNK
     Dates: start: 20070709
  18. VANCOMYCIN [Concomitant]
     Dosage: 500 MG, UNK
     Dates: start: 20070709

REACTIONS (5)
  - EMOTIONAL DISTRESS [None]
  - CEREBROVASCULAR ACCIDENT [None]
  - RENAL FAILURE [None]
  - INJURY [None]
  - ANXIETY [None]
